FAERS Safety Report 11462385 (Version 1)
Quarter: 2015Q3

REPORT INFORMATION
  Report Type: Spontaneous
  Country: US (occurrence: US)
  Receive Date: 20150831
  Receipt Date: 20150831
  Transmission Date: 20151125
  Serious: No
  Sender: FDA-Public Use
  Company Number: US-ELI_LILLY_AND_COMPANY-US201010006683

PATIENT
  Age: 64 Year
  Sex: Female

DRUGS (7)
  1. AMLODIPINE [Concomitant]
     Active Substance: AMLODIPINE BESYLATE
  2. CYMBALTA [Suspect]
     Active Substance: DULOXETINE HYDROCHLORIDE
     Dosage: 60 MG, DAILY (1/D)
     Dates: start: 201009
  3. ANTI ITCH [Concomitant]
  4. LIPITOR [Concomitant]
     Active Substance: ATORVASTATIN CALCIUM
  5. BUPROPION. [Concomitant]
     Active Substance: BUPROPION
  6. CYMBALTA [Suspect]
     Active Substance: DULOXETINE HYDROCHLORIDE
     Indication: DEPRESSION
     Dosage: 30 MG, 2/D
     Dates: start: 20100505
  7. LYRICA [Concomitant]
     Active Substance: PREGABALIN

REACTIONS (12)
  - Impaired healing [Unknown]
  - Tremor [Unknown]
  - Dermatitis allergic [Not Recovered/Not Resolved]
  - Hangnail [Unknown]
  - Rash [Not Recovered/Not Resolved]
  - Drug eruption [Not Recovered/Not Resolved]
  - Urticaria [Not Recovered/Not Resolved]
  - Scratch [Unknown]
  - Animal scratch [Unknown]
  - Inappropriate affect [Unknown]
  - Pruritus [Unknown]
  - Contusion [Unknown]

NARRATIVE: CASE EVENT DATE: 201008
